FAERS Safety Report 9642236 (Version 1)
Quarter: 2013Q4

REPORT INFORMATION
  Report Type: Spontaneous
  Country: US (occurrence: US)
  Receive Date: 20131024
  Receipt Date: 20131024
  Transmission Date: 20140711
  Serious: Yes (Other)
  Sender: FDA-Public Use
  Company Number: PHHY2013US116017

PATIENT
  Sex: Male

DRUGS (1)
  1. CARBOPLATIN [Suspect]
     Indication: RETINOBLASTOMA

REACTIONS (6)
  - Fibrosis [Unknown]
  - Retinoblastoma [Unknown]
  - Ecchymosis [Unknown]
  - Eyelid oedema [Unknown]
  - Scar [Unknown]
  - Drug ineffective [Unknown]
